FAERS Safety Report 8739266 (Version 11)
Quarter: 2014Q1

REPORT INFORMATION
  Report Type: Report from Study
  Country: US (occurrence: US)
  Receive Date: 20120823
  Receipt Date: 20140124
  Transmission Date: 20141002
  Serious: Yes (Hospitalization)
  Sender: FDA-Public Use
  Company Number: US-PURDUE-USA-2012-0091571

PATIENT
  Age: 69 Year
  Sex: Male
  Weight: 140.59 kg

DRUGS (15)
  1. OXY CR TAB [Suspect]
     Indication: BACK PAIN
     Dosage: 40 MG, BID
     Route: 048
     Dates: start: 20120802, end: 20120807
  2. MS CONTIN TABLETS [Suspect]
     Indication: BACK PAIN
     Dosage: 30 MG, TID
     Route: 048
     Dates: start: 20120808, end: 20120811
  3. COUMADIN                           /00014802/ [Concomitant]
     Indication: PRODUCT USED FOR UNKNOWN INDICATION
     Dosage: 22.5 MG, UNK
     Route: 048
  4. POTASSIUM [Concomitant]
     Indication: PRODUCT USED FOR UNKNOWN INDICATION
     Dosage: 10 MG, BID
  5. LASIX                              /00032601/ [Concomitant]
     Indication: PRODUCT USED FOR UNKNOWN INDICATION
     Dosage: 80 MG, UNK
  6. OMEPRAZOLE [Concomitant]
     Indication: PRODUCT USED FOR UNKNOWN INDICATION
     Dosage: 20 MG, DAILY
  7. METFORMIN [Concomitant]
     Indication: PRODUCT USED FOR UNKNOWN INDICATION
     Dosage: 1000 MG, BID
  8. FENOFIBRATE [Concomitant]
     Indication: PRODUCT USED FOR UNKNOWN INDICATION
     Dosage: 60 UNK, UNK
  9. LISINOPRIL [Concomitant]
     Indication: PRODUCT USED FOR UNKNOWN INDICATION
     Dosage: 10 MG, UNK
  10. FISH OIL [Concomitant]
     Dosage: UNK, BID
  11. STOOL SOFTENER [Concomitant]
  12. DULCOLAX                           /00064401/ [Concomitant]
  13. NEURONTIN [Concomitant]
     Dosage: 300 UNK, UNK
  14. AMITRIPTYLINE [Concomitant]
     Dosage: 50 MG, UNK
  15. SIMVASTATIN [Concomitant]
     Indication: PRODUCT USED FOR UNKNOWN INDICATION
     Dosage: 20 MG, DAILY

REACTIONS (2)
  - Renal failure acute [Recovered/Resolved]
  - Metabolic encephalopathy [Recovered/Resolved]
